FAERS Safety Report 14579990 (Version 1)
Quarter: 2018Q1

REPORT INFORMATION
  Report Type: Report from Study
  Country: GB (occurrence: GB)
  Receive Date: 20180228
  Receipt Date: 20180228
  Transmission Date: 20180509
  Serious: Yes (Hospitalization)
  Sender: FDA-Public Use
  Company Number: GB-AMGEN-GBRSL2018025425

PATIENT
  Sex: Female

DRUGS (1)
  1. ARANESP [Suspect]
     Active Substance: DARBEPOETIN ALFA
     Indication: PRODUCT USED FOR UNKNOWN INDICATION
     Dosage: 80 MUG, UNK
     Route: 065

REACTIONS (6)
  - Peripheral swelling [Unknown]
  - Fluid retention [Unknown]
  - Cardiac disorder [Unknown]
  - Infection [Unknown]
  - Renal disorder [Unknown]
  - Arthritis [Unknown]
